FAERS Safety Report 9131917 (Version 1)
Quarter: 2013Q1

REPORT INFORMATION
  Report Type: Spontaneous
  Country: IN (occurrence: IN)
  Receive Date: 20130301
  Receipt Date: 20130301
  Transmission Date: 20140127
  Serious: Yes (Death, Other)
  Sender: FDA-Public Use
  Company Number: IN-BAXTER-2013BAX001045

PATIENT
  Age: 32 Year
  Sex: Male

DRUGS (1)
  1. DIANEAL PD-2 PERITONEAL [Suspect]
     Indication: PERITONEAL DIALYSIS
     Route: 033
     Dates: end: 20130210

REACTIONS (2)
  - Sepsis [Fatal]
  - Peritonitis [Not Recovered/Not Resolved]
